FAERS Safety Report 23099496 (Version 2)
Quarter: 2025Q3

REPORT INFORMATION
  Report Type: Spontaneous
  Country: EU (occurrence: EU)
  Receive Date: 20231024
  Receipt Date: 20250722
  Transmission Date: 20251021
  Serious: Yes (Congenital Anomaly, Other)
  Sender: MYLAN
  Company Number: None

PATIENT
  Sex: Male
  Weight: 2.22 kg

DRUGS (2)
  1. DOXYCYCLINE [Suspect]
     Active Substance: DOXYCYCLINE
     Indication: Acne
     Dosage: 100 MILLIGRAM, QD
  2. EPIDUO [Suspect]
     Active Substance: ADAPALENE\BENZOYL PEROXIDE
     Indication: Acne

REACTIONS (2)
  - Hypospadias [Unknown]
  - Foetal exposure during pregnancy [Recovered/Resolved]

NARRATIVE: CASE EVENT DATE: 20230828
